FAERS Safety Report 9435648 (Version 1)
Quarter: 2013Q3

REPORT INFORMATION
  Report Type: Spontaneous
  Country: GB (occurrence: GB)
  Receive Date: 20130801
  Receipt Date: 20130801
  Transmission Date: 20140515
  Serious: Yes (Other)
  Sender: FDA-Public Use
  Company Number: GB-WATSON-2013-13474

PATIENT
  Sex: 0

DRUGS (1)
  1. LORATADINE (UNKNOWN) [Suspect]
     Indication: SEASONAL ALLERGY
     Dosage: 10 MG, DAILY
     Route: 048
     Dates: start: 20130611, end: 20130621

REACTIONS (1)
  - Alopecia [Unknown]
